FAERS Safety Report 8205773-8 (Version None)
Quarter: 2012Q1

REPORT INFORMATION
  Report Type: 
  Country: None (occurrence: None)
  Receive Date: 20120313
  Receipt Date: 20120308
  Transmission Date: 20120608
  Serious: Yes (Hospitalization)
  Sender: FDA-Public Use
  Company Number: JP-PFIZER INC-2012048784

PATIENT
  Age: 69 Year
  Sex: Male

DRUGS (1)
  1. EPLERENONE [Suspect]
     Dosage: UNK
     Route: 048

REACTIONS (1)
  - CARDIAC FAILURE CHRONIC [None]
